FAERS Safety Report 12480805 (Version 2)
Quarter: 2016Q3

REPORT INFORMATION
  Report Type: Spontaneous
  Country: GB (occurrence: GB)
  Receive Date: 20160620
  Receipt Date: 20160704
  Transmission Date: 20161109
  Serious: Yes (Other)
  Sender: FDA-Public Use
  Company Number: GB-IPSEN BIOPHARMACEUTICALS, INC.-2016-05284

PATIENT
  Age: 36 Year
  Sex: Female

DRUGS (5)
  1. AZZALURE [Suspect]
     Active Substance: BOTULINUM TOXIN TYPE A
     Indication: PRODUCT USE ISSUE
  2. EMERVEL [Suspect]
     Active Substance: HYALURONIC ACID
     Indication: SKIN COSMETIC PROCEDURE
     Dates: start: 20160505
  3. AZZALURE [Suspect]
     Active Substance: BOTULINUM TOXIN TYPE A
     Indication: SKIN WRINKLING
     Dosage: 100 UNITS
     Route: 030
     Dates: start: 20160505, end: 20160505
  4. EMERVEL [Suspect]
     Active Substance: HYALURONIC ACID
     Dates: start: 20160524
  5. AZZALURE [Suspect]
     Active Substance: BOTULINUM TOXIN TYPE A
     Indication: SKIN WRINKLING
     Dosage: 10 UNITS
     Route: 030
     Dates: start: 20160519, end: 20160519

REACTIONS (4)
  - Lower respiratory tract infection [Recovered/Resolved]
  - Inappropriate schedule of drug administration [Unknown]
  - Influenza like illness [Recovered/Resolved]
  - Overdose [Unknown]

NARRATIVE: CASE EVENT DATE: 20160507
